FAERS Safety Report 11652741 (Version 2)
Quarter: 2015Q4

REPORT INFORMATION
  Report Type: Spontaneous
  Country: IT (occurrence: IT)
  Receive Date: 20151022
  Receipt Date: 20151121
  Transmission Date: 20160304
  Serious: Yes (Hospitalization)
  Sender: FDA-Public Use
  Company Number: IT-BRISTOL-MYERS SQUIBB COMPANY-BMS-2015-070339

PATIENT
  Age: 87 Year
  Sex: Female

DRUGS (3)
  1. METFORMIN HYDROCHLORIDE. [Suspect]
     Active Substance: METFORMIN HYDROCHLORIDE
     Indication: TYPE 2 DIABETES MELLITUS
     Dosage: UNK
     Route: 065
  2. RAMIPRIL. [Suspect]
     Active Substance: RAMIPRIL
     Indication: HYPERTENSION
     Dosage: 10 MG, QD
     Route: 048
  3. PRADAXA [Suspect]
     Active Substance: DABIGATRAN ETEXILATE MESYLATE
     Indication: ATRIAL FIBRILLATION
     Dosage: 110 MG, Q12H
     Route: 048
     Dates: start: 201501, end: 20150707

REACTIONS (9)
  - Pharyngeal oedema [Recovering/Resolving]
  - Wheezing [Recovering/Resolving]
  - Rhonchi [Recovering/Resolving]
  - Dyspnoea [Recovering/Resolving]
  - Obstructive airways disorder [Recovering/Resolving]
  - Inflammation [Recovering/Resolving]
  - Dysphagia [Recovering/Resolving]
  - Sensation of foreign body [Recovering/Resolving]
  - Dysphonia [Recovering/Resolving]

NARRATIVE: CASE EVENT DATE: 20150706
